FAERS Safety Report 5528595-5 (Version None)
Quarter: 2007Q4

REPORT INFORMATION
  Report Type: 
  Country: None (occurrence: None)
  Receive Date: 20071121
  Receipt Date: 20071107
  Transmission Date: 20080405
  Serious: Yes (Other)
  Sender: FDA-Public Use
  Company Number: 2007S1011479

PATIENT
  Sex: Female

DRUGS (3)
  1. OMEPRAZOLE [Suspect]
     Indication: HELICOBACTER INFECTION
     Dosage: 40 MG; DAILY
     Dates: start: 20071007, end: 20071016
  2. CLARITHROMYCIN [Suspect]
     Indication: HELICOBACTER INFECTION
     Dosage: 1000 MG; DAILY
     Dates: start: 20071007, end: 20071016
  3. ALFACID /00851201/ (RIFABUTIN) [Suspect]
     Indication: HELICOBACTER INFECTION
     Dates: start: 20071007, end: 20071016

REACTIONS (19)
  - AGEUSIA [None]
  - ANHEDONIA [None]
  - ANOSMIA [None]
  - ASTHENIA [None]
  - CARDIOVASCULAR DISORDER [None]
  - CHILLS [None]
  - DIARRHOEA [None]
  - FEELING COLD [None]
  - HEARING IMPAIRED [None]
  - HERPES VIRUS INFECTION [None]
  - INSOMNIA [None]
  - MOUTH ULCERATION [None]
  - NAUSEA [None]
  - ORAL CANDIDIASIS [None]
  - PHARYNGOLARYNGEAL PAIN [None]
  - RASH [None]
  - SCAB [None]
  - TINNITUS [None]
  - WEIGHT DECREASED [None]
